FAERS Safety Report 7013578-9 (Version None)
Quarter: 2010Q3

REPORT INFORMATION
  Report Type: 
  Country: None (occurrence: None)
  Receive Date: 20100924
  Receipt Date: 20100914
  Transmission Date: 20110219
  Serious: Yes (Death)
  Sender: FDA-Public Use
  Company Number: GXKR2010GB10439

PATIENT
  Age: 17 Year
  Sex: Male
  Weight: 65 kg

DRUGS (4)
  1. OXYCODONE HCL [Interacting]
     Route: 048
  2. TOLTERODINE (NGX) [Interacting]
     Route: 065
  3. WARFARIN SODIUM [Suspect]
     Route: 065
  4. ALCOHOL [Interacting]

REACTIONS (2)
  - ACCIDENTAL OVERDOSE [None]
  - ALCOHOL INTERACTION [None]
